FAERS Safety Report 21491781 (Version 1)
Quarter: 2022Q4

REPORT INFORMATION
  Report Type: Report from Study
  Country: US (occurrence: US)
  Receive Date: 20221021
  Receipt Date: 20221021
  Transmission Date: 20230113
  Serious: Yes (Hospitalization)
  Sender: FDA-Public Use
  Company Number: US-BoehringerIngelheim-2020-BI-047352

PATIENT
  Age: 69 Year
  Sex: Female

DRUGS (2)
  1. OFEV [Suspect]
     Active Substance: NINTEDANIB
     Indication: Idiopathic pulmonary fibrosis
     Route: 048
     Dates: start: 20200901
  2. OFEV [Suspect]
     Active Substance: NINTEDANIB
     Route: 048

REACTIONS (8)
  - Lung disorder [Unknown]
  - Seasonal allergy [Unknown]
  - Dyspnoea exertional [Unknown]
  - Cough [Unknown]
  - Gastric disorder [Unknown]
  - Dysphonia [Unknown]
  - Multiple allergies [Unknown]
  - Diarrhoea [Not Recovered/Not Resolved]
